FAERS Safety Report 10254382 (Version 1)
Quarter: 2014Q2

REPORT INFORMATION
  Report Type: Spontaneous
  Country: US (occurrence: US)
  Receive Date: 20140624
  Receipt Date: 20140624
  Transmission Date: 20141212
  Serious: Yes (Hospitalization)
  Sender: FDA-Public Use
  Company Number: US-ABBVIE-14P-163-1249604-00

PATIENT
  Age: 65 Year
  Sex: Male
  Weight: 68.1 kg

DRUGS (16)
  1. ANDROGEL [Suspect]
     Indication: BLOOD TESTOSTERONE DECREASED
     Dosage: 2 PUMPS PER DAY
     Route: 061
     Dates: start: 2011, end: 201205
  2. ANDROGEL [Suspect]
     Dosage: 3 PUMPS PER DAY
     Route: 061
     Dates: start: 201205
  3. DEPAKOTE [Interacting]
     Indication: ANXIOLYTIC THERAPY
     Dates: start: 20140605, end: 20140606
  4. NUCYNTA [Interacting]
     Indication: PAIN
     Dates: end: 20140606
  5. KLONOPIN [Suspect]
     Indication: ANXIETY
     Dates: start: 1998, end: 1999
  6. KLONOPIN [Suspect]
     Dates: start: 201301, end: 201312
  7. METOPROLOL [Concomitant]
     Indication: HYPERTENSION
  8. SIMVASTATIN [Concomitant]
     Indication: BLOOD CHOLESTEROL INCREASED
  9. LAMOTRIGINE [Concomitant]
     Indication: MENTAL DISORDER
  10. GABAPENTIN [Concomitant]
     Indication: PAIN
  11. SEROQUEL [Concomitant]
     Indication: PRODUCT USED FOR UNKNOWN INDICATION
  12. VENLAFAXINE [Concomitant]
     Indication: PRODUCT USED FOR UNKNOWN INDICATION
  13. PRILOSEC [Concomitant]
     Indication: GASTROOESOPHAGEAL REFLUX DISEASE
  14. VITAMIN D3 [Concomitant]
     Indication: PRODUCT USED FOR UNKNOWN INDICATION
  15. GLUCOSAMINE [Concomitant]
     Indication: PRODUCT USED FOR UNKNOWN INDICATION
  16. AMLODIPINE [Concomitant]
     Indication: HYPERTENSION

REACTIONS (9)
  - Drug withdrawal syndrome [Recovered/Resolved]
  - Mental disorder [Recovered/Resolved]
  - Pain [Not Recovered/Not Resolved]
  - Hip arthroplasty [Recovered/Resolved]
  - Arthropathy [Recovered/Resolved]
  - Renal failure [Recovered/Resolved]
  - Loss of consciousness [Recovered/Resolved]
  - Drug interaction [Unknown]
  - Back pain [Not Recovered/Not Resolved]
